FAERS Safety Report 16420216 (Version 8)
Quarter: 2020Q1

REPORT INFORMATION
  Report Type: Spontaneous
  Country: US (occurrence: US)
  Receive Date: 20190612
  Receipt Date: 20200114
  Transmission Date: 20200409
  Serious: No
  Sender: FDA-Public Use
  Company Number: US-PFIZER INC-2019250415

PATIENT
  Age: 60 Year
  Sex: Female
  Weight: 122.45 kg

DRUGS (1)
  1. GABAPENTIN. [Suspect]
     Active Substance: GABAPENTIN
     Indication: OSTEOARTHRITIS
     Dosage: 30 MG, 3X/DAY
     Dates: start: 2018, end: 2019

REACTIONS (6)
  - Drug ineffective for unapproved indication [Unknown]
  - Feeling abnormal [Unknown]
  - Fatigue [Unknown]
  - Sleep disorder [Unknown]
  - Pain [Unknown]
  - Off label use [Unknown]

NARRATIVE: CASE EVENT DATE: 201811
